FAERS Safety Report 4628147-5 (Version None)
Quarter: 2005Q2

REPORT INFORMATION
  Report Type: 
  Country: None (occurrence: None)
  Receive Date: 20050404
  Receipt Date: 20050328
  Transmission Date: 20051028
  Serious: Yes (Hospitalization, Other)
  Sender: FDA-Public Use
  Company Number: GXBR2005US00615

PATIENT
  Age: 50 Year
  Sex: Male

DRUGS (2)
  1. RIBAVIRIN [Suspect]
     Indication: HEPATITIS C
     Dosage: 1000 MG, QD, ORAL
     Route: 048
     Dates: start: 20040721
  2. PEG-INTRON [Suspect]
     Indication: HEPATITIS C
     Dates: start: 20040721

REACTIONS (3)
  - ATRIAL FIBRILLATION [None]
  - FATIGUE [None]
  - LOSS OF CONSCIOUSNESS [None]
